FAERS Safety Report 10186579 (Version 5)
Quarter: 2015Q1

REPORT INFORMATION
  Report Type: Report from Study
  Country: US (occurrence: US)
  Receive Date: 20140521
  Receipt Date: 20150115
  Transmission Date: 20150720
  Serious: Yes (Hospitalization)
  Sender: FDA-Public Use
  Company Number: US-ACTELION-A-US2014-94933

PATIENT
  Age: 65 Year
  Sex: Female

DRUGS (2)
  1. COUMADIN [Concomitant]
     Active Substance: WARFARIN SODIUM
  2. TRACLEER [Suspect]
     Active Substance: BOSENTAN\BOSENTAN MONOHYDRATE
     Indication: PULMONARY ARTERIAL HYPERTENSION
     Dosage: UNK
     Route: 048

REACTIONS (10)
  - Blood count abnormal [Unknown]
  - Dyspnoea [Unknown]
  - Gastrointestinal haemorrhage [Recovering/Resolving]
  - Bronchitis [Unknown]
  - Cardiac disorder [Unknown]
  - Pulmonary arterial hypertension [Unknown]
  - Fluid overload [Recovering/Resolving]
  - Gastric haemorrhage [Unknown]
  - Gastric varices [Recovering/Resolving]
  - Nasopharyngitis [Unknown]

NARRATIVE: CASE EVENT DATE: 20141016
